FAERS Safety Report 19829927 (Version 2)
Quarter: 2021Q3

REPORT INFORMATION
  Report Type: Report from Study
  Country: AR (occurrence: AR)
  Receive Date: 20210915
  Receipt Date: 20210927
  Transmission Date: 20211014
  Serious: Yes (Other)
  Sender: FDA-Public Use
  Company Number: NVSC2021AR206361

PATIENT
  Sex: Female

DRUGS (7)
  1. CLONAZEPAM. [Concomitant]
     Active Substance: CLONAZEPAM
     Indication: PRODUCT USED FOR UNKNOWN INDICATION
     Dosage: 1 MG, AT NIGHT
     Route: 065
  2. DIOVAN D [Suspect]
     Active Substance: HYDROCHLOROTHIAZIDE\VALSARTAN
     Dosage: 1 DF, QD (25/160)
     Route: 065
  3. DIOVAN D [Suspect]
     Active Substance: HYDROCHLOROTHIAZIDE\VALSARTAN
     Dosage: 2 DF, QD (25/160)
     Route: 065
  4. DIOVAN D [Suspect]
     Active Substance: HYDROCHLOROTHIAZIDE\VALSARTAN
     Indication: PRODUCT USED FOR UNKNOWN INDICATION
     Dosage: 0.5 DF, QD (25/160), IN AFTERNOON (STARTED AROUND 2 YEARS AGO)
     Route: 065
  5. LEVOTHYROXINE. [Concomitant]
     Active Substance: LEVOTHYROXINE
     Indication: THYROID DISORDER
     Dosage: UNK UNK, QD (1 UNIT NOT PROVIDED)
     Route: 065
  6. CARVEDILOL. [Concomitant]
     Active Substance: CARVEDILOL
     Indication: PRODUCT USED FOR UNKNOWN INDICATION
     Dosage: UNK (0.25 UNIT NOT PROVIDED)
     Route: 065
  7. DIOVAN D [Suspect]
     Active Substance: HYDROCHLOROTHIAZIDE\VALSARTAN
     Dosage: UNK UNK, BID
     Route: 065

REACTIONS (15)
  - Fall [Unknown]
  - Anxiety [Unknown]
  - Head discomfort [Unknown]
  - Tooth disorder [Unknown]
  - Blood pressure decreased [Recovered/Resolved]
  - Tension [Unknown]
  - Nasopharyngitis [Unknown]
  - Varicophlebitis [Unknown]
  - Blood pressure increased [Recovered/Resolved]
  - Varicose vein ruptured [Unknown]
  - Chills [Unknown]
  - Headache [Unknown]
  - Nervousness [Unknown]
  - Neck pain [Unknown]
  - Pain in extremity [Unknown]
